FAERS Safety Report 8696919 (Version 2)
Quarter: 2013Q4

REPORT INFORMATION
  Report Type: Report from Study
  Country: DE (occurrence: DE)
  Receive Date: 20120801
  Receipt Date: 20131204
  Transmission Date: 20140711
  Serious: Yes (Death)
  Sender: FDA-Public Use
  Company Number: DE-ROCHE-1091242

PATIENT
  Age: 74 Year
  Sex: Male
  Weight: 71.2 kg

DRUGS (11)
  1. METHOXY POLYETHYLENE GLYCOL-EPOETIN BETA [Suspect]
     Indication: NEPHROGENIC ANAEMIA
     Dosage: DATE OF LAST DOSE PRIOR TO SAE: 09/APR/2012
     Route: 042
     Dates: start: 20111219
  2. CARVEDILOL [Concomitant]
     Route: 065
     Dates: start: 20120227
  3. LEVOTHYROXINE [Concomitant]
     Route: 065
     Dates: start: 20100219
  4. CANDESARTAN [Concomitant]
     Route: 065
     Dates: start: 20120203
  5. TORASEMID [Concomitant]
     Route: 065
     Dates: start: 20120228
  6. NATRIUMHYDROGENCARBONAT [Concomitant]
     Route: 065
     Dates: start: 20080821
  7. DIGITOXIN [Concomitant]
     Route: 065
     Dates: start: 20090804
  8. OMEPRAZOL [Concomitant]
     Route: 065
     Dates: start: 20070227
  9. SEVELAMER [Concomitant]
     Route: 065
     Dates: start: 20111210
  10. COLECALCIFEROL [Concomitant]
     Route: 065
     Dates: start: 20080111
  11. ALFACALCIDOL [Concomitant]
     Route: 065
     Dates: start: 20120113

REACTIONS (1)
  - Fall [Fatal]
